FAERS Safety Report 14941528 (Version 2)
Quarter: 2018Q2

REPORT INFORMATION
  Report Type: Spontaneous
  Country: US (occurrence: US)
  Receive Date: 20180526
  Receipt Date: 20180601
  Transmission Date: 20180711
  Serious: No
  Sender: FDA-Public Use
  Company Number: US-JNJFOC-20180514678

PATIENT
  Sex: Male

DRUGS (8)
  1. DIPROSONE [Concomitant]
     Active Substance: BETAMETHASONE DIPROPIONATE
  2. SENOKOT [Concomitant]
     Active Substance: SENNOSIDES
  3. VALPROIC ACID. [Concomitant]
     Active Substance: VALPROIC ACID
  4. GEODON [Concomitant]
     Active Substance: ZIPRASIDONE HYDROCHLORIDE\ZIPRASIDONE MESYLATE
  5. ASCORBIC ACID. [Concomitant]
     Active Substance: ASCORBIC ACID
  6. TREMFYA [Suspect]
     Active Substance: GUSELKUMAB
     Indication: PSORIASIS
     Route: 058
  7. FLOMAX [Concomitant]
     Active Substance: TAMSULOSIN HYDROCHLORIDE
  8. ORTHO-NOVUM [Concomitant]
     Active Substance: ETHINYL ESTRADIOL\NORETHINDRONE

REACTIONS (1)
  - Drug ineffective [Unknown]
